FAERS Safety Report 17221724 (Version 2)
Quarter: 2020Q1

REPORT INFORMATION
  Report Type: Spontaneous
  Country: FI (occurrence: FI)
  Receive Date: 20200101
  Receipt Date: 20200212
  Transmission Date: 20200409
  Serious: Yes (Hospitalization, Other)
  Sender: FDA-Public Use
  Company Number: FI-AMGEN-FINSP2019214880

PATIENT
  Age: 26 Year
  Sex: Female

DRUGS (5)
  1. AMGEVITA [Suspect]
     Active Substance: ADALIMUMAB
     Indication: CROHN^S DISEASE
     Dosage: 40 MILLIGRAM, QD
     Route: 058
     Dates: start: 20181101
  2. PANACOD [Concomitant]
     Active Substance: ACETAMINOPHEN\CODEINE PHOSPHATE
     Dosage: 1 DOSAGE FORM, QD
     Route: 048
  3. VENLAFAXINE [Concomitant]
     Active Substance: VENLAFAXINE HYDROCHLORIDE
     Dosage: 150 MILLIGRAM, QD
     Route: 048
  4. BURANA [Concomitant]
     Active Substance: IBUPROFEN
     Dosage: 600 MILLIGRAM, QD
     Route: 048
  5. AMGEVITA [Suspect]
     Active Substance: ADALIMUMAB
     Dosage: 80 MILLIGRAM, QMO
     Route: 058
     Dates: start: 20181101

REACTIONS (15)
  - Malaise [Recovered/Resolved]
  - Mouth ulceration [Recovered/Resolved]
  - Myalgia [Recovered/Resolved]
  - Oedema peripheral [Unknown]
  - Pyrexia [Recovered/Resolved]
  - Lupus-like syndrome [Recovered/Resolved]
  - Pneumonia [Recovered/Resolved]
  - Oedema peripheral [Recovered/Resolved]
  - C-reactive protein increased [Recovered/Resolved]
  - Aphthous ulcer [Recovered/Resolved]
  - Synovitis [Recovered/Resolved]
  - Nail cuticle fissure [Recovered/Resolved]
  - Arthralgia [Recovered/Resolved]
  - Nail bed bleeding [Recovered/Resolved]
  - Antinuclear antibody increased [Recovered/Resolved]

NARRATIVE: CASE EVENT DATE: 201904
